FAERS Safety Report 23724244 (Version 1)
Quarter: 2024Q2

REPORT INFORMATION
  Report Type: Spontaneous
  Country: EG (occurrence: EG)
  Receive Date: 20240409
  Receipt Date: 20240409
  Transmission Date: 20240715
  Serious: Yes (Hospitalization, Disabling, Other)
  Sender: FDA-Public Use
  Company Number: EG-HIKMA PHARMACEUTICALS USA INC.-EG-H14001-24-02807

PATIENT

DRUGS (3)
  1. PACLITAXEL [Suspect]
     Active Substance: PACLITAXEL
     Dosage: 120MG DILUTED IN 250 ML NORMAL SALINE OVER 1 HR, WEEKLY
     Route: 065
  2. PACLITAXEL [Suspect]
     Active Substance: PACLITAXEL
     Indication: Breast cancer
     Dosage: 130MG DILUTED IN 250 ML NORMAL SALINE OVER 1 HR, WEEKLY
     Route: 065
     Dates: start: 20240129
  3. PACLITAXEL [Suspect]
     Active Substance: PACLITAXEL
     Dosage: 130MG DILUTED IN 250 ML NORMAL SALINE OVER 1 HR, WEEKLY
     Route: 065
     Dates: start: 20240226

REACTIONS (5)
  - Neuropathy peripheral [Not Recovered/Not Resolved]
  - Pain in extremity [Not Recovered/Not Resolved]
  - Gait inability [Not Recovered/Not Resolved]
  - Rectal haemorrhage [Not Recovered/Not Resolved]
  - Constipation [Recovered/Resolved with Sequelae]

NARRATIVE: CASE EVENT DATE: 20240226
